FAERS Safety Report 7567962-5 (Version None)
Quarter: 2011Q2

REPORT INFORMATION
  Report Type: 
  Country: None (occurrence: None)
  Receive Date: 20110623
  Receipt Date: 20110616
  Transmission Date: 20111010
  Serious: Yes (Other)
  Sender: FDA-Public Use
  Company Number: US-BRISTOL-MYERS SQUIBB COMPANY-15837974

PATIENT
  Age: 57 Year
  Sex: Female

DRUGS (1)
  1. COUMADIN [Suspect]
     Indication: CEREBROVASCULAR ACCIDENT
     Dosage: COUMADIN 5 MG  ALTERNATING WITH 7.5 MG DAILY
     Route: 048
     Dates: start: 20001001

REACTIONS (3)
  - INCREASED TENDENCY TO BRUISE [None]
  - KNEE ARTHROPLASTY [None]
  - CARDIAC DISORDER [None]
